FAERS Safety Report 12825448 (Version 1)
Quarter: 2016Q4

REPORT INFORMATION
  Report Type: Spontaneous
  Country: US (occurrence: US)
  Receive Date: 20161006
  Receipt Date: 20161006
  Transmission Date: 20170207
  Serious: Yes (Life-Threatening, Hospitalization)
  Sender: FDA-Public Use
  Company Number: US-GLAXOSMITHKLINE-US2016146442

PATIENT
  Age: 73 Year
  Sex: Female

DRUGS (14)
  1. BUPROPION. [Concomitant]
     Active Substance: BUPROPION
  2. LISINOPRIL. [Concomitant]
     Active Substance: LISINOPRIL
  3. EFFEXOR [Concomitant]
     Active Substance: VENLAFAXINE HYDROCHLORIDE
  4. DILTIAZEM. [Concomitant]
     Active Substance: DILTIAZEM
  5. KETOCONAZOLE. [Concomitant]
     Active Substance: KETOCONAZOLE
  6. ATORVASTATIN [Concomitant]
     Active Substance: ATORVASTATIN
  7. FLUTICASONE [Concomitant]
     Active Substance: FLUTICASONE\FLUTICASONE PROPIONATE
  8. IRON [Concomitant]
     Active Substance: IRON
  9. ROPINIROLE. [Concomitant]
     Active Substance: ROPINIROLE
  10. BREO ELLIPTA [Suspect]
     Active Substance: FLUTICASONE FUROATE\VILANTEROL TRIFENATATE
     Indication: ASTHMA
     Dosage: 1 PUFF(S), QD
     Route: 055
     Dates: start: 20160927, end: 20160928
  11. TIKOSYN [Concomitant]
     Active Substance: DOFETILIDE
  12. OMEPRAZOLE. [Concomitant]
     Active Substance: OMEPRAZOLE
  13. OXYCODONE [Concomitant]
     Active Substance: OXYCODONE
  14. LASIX [Concomitant]
     Active Substance: FUROSEMIDE

REACTIONS (4)
  - Hypoaesthesia [Recovered/Resolved]
  - Swollen tongue [Recovered/Resolved]
  - Feeling cold [Recovered/Resolved]
  - Headache [Recovered/Resolved]

NARRATIVE: CASE EVENT DATE: 20160928
